FAERS Safety Report 8601793-X (Version None)
Quarter: 2012Q3

REPORT INFORMATION
  Report Type: 
  Country: None (occurrence: None)
  Receive Date: 20120817
  Receipt Date: 20120417
  Transmission Date: 20120928
  Serious: No
  Sender: FDA-Public Use
  Company Number: US-BRISTOL-MYERS SQUIBB COMPANY-16529976

PATIENT
  Age: 72 Year
  Sex: Female
  Weight: 41 kg

DRUGS (2)
  1. IMODIUM [Concomitant]
  2. SPRYCEL [Suspect]
     Indication: CHRONIC MYELOID LEUKAEMIA
     Route: 048

REACTIONS (1)
  - DIARRHOEA [None]
